FAERS Safety Report 8879972 (Version 1)
Quarter: 2012Q4

REPORT INFORMATION
  Report Type: 
  Country: GB (occurrence: GB)
  Receive Date: 20121101
  Receipt Date: 20121101
  Transmission Date: 20130627
  Serious: Yes (Other)
  Sender: FDA-Public Use
  Company Number: PHHY2012GB096274

PATIENT
  Age: 12 Year
  Sex: Male
  Weight: 30 kg

DRUGS (4)
  1. OMEPRAZOLE [Suspect]
     Dosage: 20 mg, QD
     Route: 048
     Dates: start: 20120927
  2. CLARITHROMYCIN [Suspect]
     Indication: HELICOBACTER INFECTION
     Dosage: 500 mg, BID
     Route: 048
     Dates: start: 20120928, end: 20121005
  3. AMOXICILLIN [Suspect]
     Indication: HELICOBACTER INFECTION
     Dosage: 1 g, UNK
     Route: 048
     Dates: start: 20120928, end: 20121005
  4. DEFERASIROX [Suspect]
     Indication: IRON OVERLOAD
     Route: 048
     Dates: start: 2009, end: 20121008

REACTIONS (5)
  - Pancreatitis [Recovered/Resolved]
  - Vomiting [Recovered/Resolved]
  - Abdominal pain [Recovered/Resolved]
  - Pyrexia [Recovered/Resolved]
  - Amylase increased [Recovered/Resolved]
